FAERS Safety Report 18452231 (Version 4)
Quarter: 2021Q1

REPORT INFORMATION
  Report Type: Spontaneous
  Country: US (occurrence: US)
  Receive Date: 20201102
  Receipt Date: 20210311
  Transmission Date: 20210419
  Serious: Yes (Hospitalization, Other)
  Sender: FDA-Public Use
  Company Number: US-BAYER-2020-230824

PATIENT
  Age: 75 Year
  Sex: Female

DRUGS (2)
  1. ADEMPAS [Suspect]
     Active Substance: RIOCIGUAT
     Indication: PULMONARY HYPERTENSION
     Dosage: 2.5 MG, TID
     Route: 048
     Dates: start: 202005
  2. WARFARIN [Concomitant]
     Active Substance: WARFARIN
     Indication: PULMONARY HYPERTENSION
     Dosage: UNK

REACTIONS (7)
  - Syncope [Recovered/Resolved]
  - Gastrointestinal haemorrhage [None]
  - Gastrointestinal haemorrhage [None]
  - Presyncope [None]
  - Hiatus hernia [None]
  - Dizziness [None]
  - Oesophagitis [None]

NARRATIVE: CASE EVENT DATE: 20201001
